FAERS Safety Report 16245496 (Version 1)
Quarter: 2019Q2

REPORT INFORMATION
  Report Type: Report from Study
  Country: JP (occurrence: JP)
  Receive Date: 20190426
  Receipt Date: 20190426
  Transmission Date: 20190711
  Serious: Yes (Death)
  Sender: FDA-Public Use
  Company Number: JP-BIOCODEX SA-201900337

PATIENT
  Sex: Male

DRUGS (1)
  1. DIACOMIT [Suspect]
     Active Substance: STIRIPENTOL
     Indication: SEVERE MYOCLONIC EPILEPSY OF INFANCY
     Dosage: UNK
     Route: 048

REACTIONS (2)
  - Product use in unapproved indication [Unknown]
  - Death [Fatal]
